FAERS Safety Report 6921974-0 (Version None)
Quarter: 2010Q3

REPORT INFORMATION
  Report Type: 
  Country: None (occurrence: None)
  Receive Date: 20100812
  Receipt Date: 20100730
  Transmission Date: 20110219
  Serious: Yes (Hospitalization)
  Sender: FDA-Public Use
  Company Number: ES-ELI_LILLY_AND_COMPANY-ES201008000046

PATIENT
  Sex: Female
  Weight: 35.5 kg

DRUGS (9)
  1. FORTEO [Suspect]
     Indication: OSTEOPOROSIS
     Dosage: 20 UG, DAILY (1/D)
     Route: 058
     Dates: start: 20100723, end: 20100723
  2. ATROVENT [Concomitant]
     Indication: CHRONIC OBSTRUCTIVE PULMONARY DISEASE
     Dosage: 1 NEBULIZATION, EVERY 8 HRS
     Route: 055
  3. PULMICORT [Concomitant]
     Indication: CHRONIC OBSTRUCTIVE PULMONARY DISEASE
     Dosage: 1 NEBULIZATION, 2/D
     Route: 055
  4. VENTOLIN                                /SCH/ [Concomitant]
     Indication: CHRONIC OBSTRUCTIVE PULMONARY DISEASE
     Dosage: 1 NEBULIZATION, EVERY 8 HRS
     Route: 055
  5. COZAAR [Concomitant]
     Indication: HYPERTENSION
     Dosage: 2 TABLETS, DAILY (1/D)
     Route: 048
  6. ALPRAZOLAM [Concomitant]
     Indication: DEPRESSION
     Dosage: 1 TABLET, DAILY (1/D)
     Route: 048
  7. ALMAX [Concomitant]
     Dosage: 1 PACKET, DAILY (1/D)
     Route: 048
  8. CYMBALTA [Concomitant]
     Indication: DEPRESSION
     Dosage: 1 TABLET, DAILY (1/D)
     Route: 048
  9. ATORVASTATINA [Concomitant]
     Dosage: 1 TABLET, DAILY (1/D)
     Route: 048

REACTIONS (8)
  - ARTHRALGIA [None]
  - ASTHENIA [None]
  - CONSTIPATION [None]
  - MALAISE [None]
  - MEMORY IMPAIRMENT [None]
  - MINERAL DEFICIENCY [None]
  - NAUSEA [None]
  - VOMITING [None]
